FAERS Safety Report 7717674-X (Version None)
Quarter: 2011Q3

REPORT INFORMATION
  Report Type: 
  Country: None (occurrence: None)
  Receive Date: 20110830
  Receipt Date: 20110830
  Transmission Date: 20111222
  Serious: Yes (Other)
  Sender: FDA-Public Use
  Company Number: None

PATIENT
  Age: 53 Year
  Sex: Female
  Weight: 61.234 kg

DRUGS (1)
  1. AVELOX [Suspect]
     Indication: BRONCHITIS BACTERIAL
     Dosage: 400 MG
     Route: 048
     Dates: start: 20110825, end: 20110827

REACTIONS (6)
  - ARTHRALGIA [None]
  - ARTHROPATHY [None]
  - HYPOAESTHESIA [None]
  - ASTHENIA [None]
  - FATIGUE [None]
  - PARAESTHESIA [None]
